APPROVED DRUG PRODUCT: SPIRONOLACTONE
Active Ingredient: SPIRONOLACTONE
Strength: 25MG
Dosage Form/Route: TABLET;ORAL
Application: A087952 | Product #001
Applicant: WARNER CHILCOTT DIV WARNER LAMBERT CO
Approved: Nov 18, 1982 | RLD: No | RS: No | Type: DISCN